FAERS Safety Report 4946654-2 (Version None)
Quarter: 2006Q1

REPORT INFORMATION
  Report Type: 
  Country: None (occurrence: None)
  Receive Date: 20060201
  Receipt Date: 20051215
  Transmission Date: 20060701
  Serious: No
  Sender: FDA-Public Use
  Company Number: 2005PV005917

PATIENT
  Age: 67 Year
  Sex: Female
  Weight: 120.2032 kg

DRUGS (7)
  1. BYETTA [Suspect]
     Indication: DIABETES MELLITUS NON-INSULIN-DEPENDENT
     Dosage: 5 MCG; BID; SC
     Route: 058
     Dates: start: 20051101
  2. GLUCOPHAGE [Concomitant]
  3. GLIPIZIDE [Concomitant]
  4. FUROSEMIDE [Concomitant]
  5. ALTACE [Concomitant]
  6. CRESTOR [Concomitant]
  7. NEURONTIN [Concomitant]

REACTIONS (2)
  - PRURITUS GENERALISED [None]
  - WEIGHT DECREASED [None]
